FAERS Safety Report 6051357-X (Version None)
Quarter: 2009Q1

REPORT INFORMATION
  Report Type: 
  Country: None (occurrence: None)
  Receive Date: 20090126
  Receipt Date: 20081205
  Transmission Date: 20090719
  Serious: Yes (Other)
  Sender: FDA-Public Use
  Company Number: PHHY2008DE29666

PATIENT
  Sex: Female

DRUGS (1)
  1. LDT600 LDT+ [Suspect]
     Indication: HEPATITIS B
     Dosage: 600 MG, QD
     Route: 048
     Dates: start: 20080812

REACTIONS (3)
  - ALOPECIA [None]
  - DEPRESSION [None]
  - FATIGUE [None]
